FAERS Safety Report 7030997-5 (Version None)
Quarter: 2010Q4

REPORT INFORMATION
  Report Type: 
  Country: None (occurrence: None)
  Receive Date: 20101006
  Receipt Date: 20100521
  Transmission Date: 20110411
  Serious: Yes (Other)
  Sender: FDA-Public Use
  Company Number: US-BRISTOL-MYERS SQUIBB COMPANY-15116312

PATIENT
  Age: 31 Year
  Sex: Female
  Weight: 59 kg

DRUGS (3)
  1. KENALOG-40 [Suspect]
     Indication: BACK PAIN
     Dosage: 1DF-2INJ EACH INJ WIT KENALOG2.5CC WITH LIDOCAINE 2.5CC.DOSE 27JAN,10+24FEB,10MAR10,1INJ ON 17MAR10.
     Dates: start: 20100127
  2. KENALOG-40 [Suspect]
     Indication: MUSCLE SPASMS
     Dosage: 1DF-2INJ EACH INJ WIT KENALOG2.5CC WITH LIDOCAINE 2.5CC.DOSE 27JAN,10+24FEB,10MAR10,1INJ ON 17MAR10.
     Dates: start: 20100127
  3. LIDOCAINE [Suspect]
     Dosage: 1 DF-2.5CC.

REACTIONS (2)
  - SWELLING FACE [None]
  - WEIGHT INCREASED [None]
